FAERS Safety Report 20157547 (Version 1)
Quarter: 2021Q4

REPORT INFORMATION
  Report Type: Spontaneous
  Country: US (occurrence: US)
  Receive Date: 20211207
  Receipt Date: 20211207
  Transmission Date: 20220303
  Serious: No
  Sender: FDA-Public Use
  Company Number: US-IBSA PHARMA INC.-2021IBS000144

PATIENT

DRUGS (3)
  1. TIROSINT [Suspect]
     Active Substance: LEVOTHYROXINE SODIUM
     Indication: Thyroid hormone replacement therapy
     Dosage: UNK
     Route: 048
  2. TIROSINT [Suspect]
     Active Substance: LEVOTHYROXINE SODIUM
     Dosage: 112 ?G, TID
     Route: 048
  3. TIROSINT [Suspect]
     Active Substance: LEVOTHYROXINE SODIUM
     Dosage: UNK, QD
     Route: 048
     Dates: start: 20210610

REACTIONS (5)
  - Lethargy [Not Recovered/Not Resolved]
  - Feeling cold [Not Recovered/Not Resolved]
  - Feeling abnormal [Not Recovered/Not Resolved]
  - Poor quality product administered [Unknown]
  - Product storage error [Unknown]

NARRATIVE: CASE EVENT DATE: 20210101
